FAERS Safety Report 8285052-3 (Version None)
Quarter: 2012Q2

REPORT INFORMATION
  Report Type: 
  Country: None (occurrence: None)
  Receive Date: 20120413
  Receipt Date: 20111215
  Transmission Date: 20120825
  Serious: No
  Sender: FDA-Public Use
  Company Number: US-ASTRAZENECA-2011SE75851

PATIENT
  Age: 73 Year
  Sex: Male
  Weight: 99.8 kg

DRUGS (4)
  1. PLAVIX [Concomitant]
     Indication: BLOOD PRESSURE ABNORMAL
  2. REQUIP [Concomitant]
     Indication: RESTLESS LEGS SYNDROME
  3. NEXIUM [Suspect]
     Indication: GASTROOESOPHAGEAL REFLUX DISEASE
     Route: 048
  4. CENICAR [Concomitant]
     Indication: BLOOD PRESSURE ABNORMAL

REACTIONS (3)
  - GASTROOESOPHAGEAL REFLUX DISEASE [None]
  - DYSPEPSIA [None]
  - DRUG DOSE OMISSION [None]
